FAERS Safety Report 8522366-3 (Version None)
Quarter: 2012Q3

REPORT INFORMATION
  Report Type: 
  Country: None (occurrence: None)
  Receive Date: 20120719
  Receipt Date: 20120709
  Transmission Date: 20120928
  Serious: Yes (Other)
  Sender: FDA-Public Use
  Company Number: US-ABBOTT-12P-163-0955071-00

PATIENT
  Sex: Male
  Weight: 111.23 kg

DRUGS (24)
  1. COGENTIN [Concomitant]
     Indication: ADVERSE DRUG REACTION
  2. LISINOPRIL [Concomitant]
     Indication: CARDIAC DISORDER
  3. CENTRUM [Concomitant]
     Indication: PRODUCT USED FOR UNKNOWN INDICATION
  4. FISH OIL [Concomitant]
     Indication: CARDIAC DISORDER
  5. COMBIVENT [Concomitant]
     Indication: DYSPNOEA
  6. HUMIRA [Suspect]
     Indication: RHEUMATOID ARTHRITIS
     Dates: start: 20110101, end: 20120705
  7. METHOTREXATE [Concomitant]
     Indication: RHEUMATOID ARTHRITIS
  8. VITAMIN D [Concomitant]
     Indication: VITAMIN D DEFICIENCY
  9. MUCINEX [Concomitant]
     Indication: RHINITIS
  10. INVEGA [Concomitant]
     Indication: AFFECTIVE DISORDER
  11. CRESTOR [Concomitant]
     Indication: BLOOD CHOLESTEROL INCREASED
  12. PONARIS [Concomitant]
     Indication: RHINITIS
  13. FLONASE [Concomitant]
     Indication: NASAL SEPTAL OPERATION
  14. MUCINEX [Concomitant]
     Indication: SEASONAL ALLERGY
  15. FOLIC ACID [Concomitant]
     Indication: PRODUCT USED FOR UNKNOWN INDICATION
  16. REMERON [Concomitant]
     Indication: AFFECTIVE DISORDER
  17. CYMBALTA [Concomitant]
     Indication: DEPRESSION
  18. FLONASE [Concomitant]
     Indication: NASAL SEPTUM DEVIATION
  19. ASPIRIN [Concomitant]
     Indication: CORONARY ARTERY BYPASS
  20. FLONASE [Concomitant]
     Indication: UPPER-AIRWAY COUGH SYNDROME
  21. COREG [Concomitant]
     Indication: CORONARY ARTERY BYPASS
  22. NITROSTAT [Concomitant]
     Indication: CHEST PAIN
  23. PLAVIX [Concomitant]
     Indication: CORONARY ARTERY BYPASS
  24. ASACOL [Concomitant]
     Indication: COLITIS ULCERATIVE

REACTIONS (2)
  - ARTHRITIS [None]
  - CARPAL TUNNEL SYNDROME [None]
